FAERS Safety Report 5048399-X (Version None)
Quarter: 2006Q2

REPORT INFORMATION
  Report Type: 
  Country: None (occurrence: None)
  Receive Date: 20060601
  Receipt Date: 20060323
  Transmission Date: 20061013
  Serious: No
  Sender: FDA-Public Use
  Company Number: 2006PV010786

PATIENT
  Age: 54 Year
  Sex: Female
  Weight: 108.8633 kg

DRUGS (5)
  1. BYETTA [Suspect]
     Indication: DIABETES MELLITUS NON-INSULIN-DEPENDENT
     Dosage: 5 MCG;BID;SC
     Route: 058
     Dates: start: 20060101
  2. ASPIRIN [Concomitant]
  3. METFORMIN HCL [Concomitant]
  4. AVANDIA [Concomitant]
  5. VITAMIN E /001105/ [Concomitant]

REACTIONS (2)
  - INJECTION SITE BRUISING [None]
  - URTICARIA [None]
